FAERS Safety Report 4819985-4 (Version None)
Quarter: 2005Q4

REPORT INFORMATION
  Report Type: 
  Country: None (occurrence: None)
  Receive Date: 20051031
  Receipt Date: 20050826
  Transmission Date: 20060501
  Serious: No
  Sender: FDA-Public Use
  Company Number: 2005PV001239

PATIENT
  Age: 49 Year
  Sex: Female
  Weight: 66.6788 kg

DRUGS (8)
  1. SYMLIN [Suspect]
     Indication: DIABETES MELLITUS INSULIN-DEPENDENT
     Dosage: 60 MCG; TID; SC; SEE IMAGE
     Route: 058
     Dates: start: 20050718, end: 20050701
  2. SYMLIN [Suspect]
     Indication: DIABETES MELLITUS INSULIN-DEPENDENT
     Dosage: 60 MCG; TID; SC; SEE IMAGE
     Route: 058
     Dates: end: 20050708
  3. SYMLIN [Suspect]
     Indication: DIABETES MELLITUS INSULIN-DEPENDENT
     Dosage: 60 MCG; TID; SC; SEE IMAGE
     Route: 058
     Dates: start: 20050601
  4. SYMLIN [Suspect]
     Indication: DIABETES MELLITUS INSULIN-DEPENDENT
     Dosage: 60 MCG; TID; SC; SEE IMAGE
     Route: 058
     Dates: start: 20050701
  5. LANTUS [Concomitant]
  6. HUMALOG [Concomitant]
  7. ISOSORBIDE [Concomitant]
  8. LANTUS [Concomitant]

REACTIONS (3)
  - BLOOD GLUCOSE DECREASED [None]
  - DIABETES MELLITUS INADEQUATE CONTROL [None]
  - HEADACHE [None]
